FAERS Safety Report 12448073 (Version 2)
Quarter: 2016Q2

REPORT INFORMATION
  Report Type: Spontaneous
  Country: None (occurrence: CR)
  Receive Date: 20160608
  Receipt Date: 20160608
  Transmission Date: 20160815
  Serious: Yes (Other)
  Sender: FDA-Public Use
  Company Number: CR-MERCK KGAA-1053524

PATIENT

DRUGS (1)
  1. NOVOTHYROX [Suspect]
     Active Substance: LEVOTHYROXINE SODIUM

REACTIONS (12)
  - Hypersensitivity [None]
  - Arthralgia [None]
  - Fatigue [None]
  - Dysphagia [None]
  - Throat tightness [None]
  - Myalgia [None]
  - Choking [None]
  - Dysphonia [None]
  - Ocular discomfort [None]
  - Limb discomfort [None]
  - Weight increased [None]
  - Throat irritation [None]
